FAERS Safety Report 12492087 (Version 2)
Quarter: 2016Q3

REPORT INFORMATION
  Report Type: Spontaneous
  Country: GB (occurrence: GB)
  Receive Date: 20160623
  Receipt Date: 20160721
  Transmission Date: 20161109
  Serious: Yes (Other)
  Sender: FDA-Public Use
  Company Number: GB-NOVOPROD-495172

PATIENT
  Age: 55 Year
  Sex: Female
  Weight: 65 kg

DRUGS (4)
  1. LEVEMIR [Concomitant]
     Active Substance: INSULIN DETEMIR
     Indication: TYPE 1 DIABETES MELLITUS
     Dosage: 4 IU, BID
     Route: 058
     Dates: end: 20160223
  2. NOVORAPID [Concomitant]
     Active Substance: INSULIN ASPART
     Indication: TYPE 1 DIABETES MELLITUS
     Dosage: 2 IU, TID
     Route: 058
     Dates: start: 201009
  3. ATORVASTATIN [Concomitant]
     Active Substance: ATORVASTATIN
     Indication: PRODUCT USED FOR UNKNOWN INDICATION
     Dosage: 10 MG
     Route: 048
     Dates: start: 20140318
  4. TRESIBA PENFILL [Suspect]
     Active Substance: INSULIN DEGLUDEC
     Indication: TYPE 1 DIABETES MELLITUS
     Dosage: 6 IU, UNK
     Route: 058
     Dates: start: 20160223, end: 20160501

REACTIONS (8)
  - Chest pain [Recovering/Resolving]
  - Throat irritation [Recovering/Resolving]
  - Condition aggravated [Unknown]
  - Fatigue [Recovering/Resolving]
  - Dyspnoea [Recovered/Resolved]
  - Gastrooesophageal reflux disease [Recovering/Resolving]
  - Palpitations [Recovering/Resolving]
  - Post viral fatigue syndrome [Recovering/Resolving]

NARRATIVE: CASE EVENT DATE: 201602
